FAERS Safety Report 5455860-2 (Version None)
Quarter: 2007Q3

REPORT INFORMATION
  Report Type: 
  Country: None (occurrence: None)
  Receive Date: 20070918
  Receipt Date: 20070228
  Transmission Date: 20080115
  Serious: Yes (Other)
  Sender: FDA-Public Use
  Company Number: US-ASTRAZENECA-2006UW23109

PATIENT
  Sex: Female
  Weight: 106.8 kg

DRUGS (6)
  1. SEROQUEL [Suspect]
     Indication: HALLUCINATION, AUDITORY
     Route: 048
     Dates: start: 20050808, end: 20060119
  2. SEROQUEL [Suspect]
     Indication: INSOMNIA
     Route: 048
     Dates: start: 20050808, end: 20060119
  3. SEROQUEL [Suspect]
     Indication: HEADACHE
     Route: 048
     Dates: start: 20050808, end: 20060119
  4. TRILAFON [Concomitant]
  5. ZYPREXA [Concomitant]
  6. UNSPECIFIED [Concomitant]

REACTIONS (2)
  - DIABETES MELLITUS [None]
  - PANCREATITIS [None]
